FAERS Safety Report 4754572-8 (Version None)
Quarter: 2005Q3

REPORT INFORMATION
  Report Type: 
  Country: None (occurrence: None)
  Receive Date: 20050829
  Receipt Date: 20050823
  Transmission Date: 20060218
  Serious: Yes (Hospitalization)
  Sender: FDA-Public Use
  Company Number: GB-BRISTOL-MYERS SQUIBB COMPANY-13087127

PATIENT
  Age: 62 Year
  Sex: Male

DRUGS (11)
  1. ASPIRIN [Suspect]
     Indication: MYOCARDIAL INFARCTION
     Route: 048
     Dates: end: 20050804
  2. ASPIRIN [Suspect]
     Indication: TRANSIENT ISCHAEMIC ATTACK
     Route: 048
     Dates: end: 20050804
  3. WARFARIN SODIUM [Suspect]
     Indication: ATRIAL FIBRILLATION
     Route: 048
     Dates: end: 20050804
  4. DICLOFENAC [Suspect]
     Indication: PAIN
     Route: 048
     Dates: end: 20050804
  5. GTN [Concomitant]
     Indication: MYOCARDIAL ISCHAEMIA
     Route: 060
  6. CANDESARTAN [Concomitant]
     Indication: MYOCARDIAL ISCHAEMIA
     Route: 048
  7. NICORANDIL [Concomitant]
     Indication: MYOCARDIAL ISCHAEMIA
     Route: 048
  8. ISOSORBIDE MONONITRATE [Concomitant]
     Indication: MYOCARDIAL ISCHAEMIA
     Route: 048
  9. ADIZEM-XL [Concomitant]
     Indication: MYOCARDIAL ISCHAEMIA
     Route: 048
  10. DIGOXIN [Concomitant]
     Indication: ATRIAL FIBRILLATION
     Route: 048
  11. SIMVASTATIN [Concomitant]
     Indication: MYOCARDIAL ISCHAEMIA
     Route: 048

REACTIONS (4)
  - CHEST DISCOMFORT [None]
  - CIRCULATORY COLLAPSE [None]
  - DYSPNOEA [None]
  - GASTRIC ULCER [None]
